FAERS Safety Report 6151805-0 (Version None)
Quarter: 2009Q2

REPORT INFORMATION
  Report Type: 
  Country: None (occurrence: None)
  Receive Date: 20090410
  Receipt Date: 20090402
  Transmission Date: 20091009
  Serious: Yes (Other)
  Sender: FDA-Public Use
  Company Number: BR-ABBOTT-09P-020-0497926-00

PATIENT
  Sex: Female

DRUGS (10)
  1. HUMIRA [Suspect]
     Indication: RHEUMATOID ARTHRITIS
     Dates: start: 20050801
  2. HUMIRA [Suspect]
  3. METHOTREXATE [Concomitant]
     Indication: DRUG USE FOR UNKNOWN INDICATION
  4. DEFLAZACORT [Concomitant]
     Indication: DRUG USE FOR UNKNOWN INDICATION
  5. WARFARIN [Concomitant]
     Indication: PULMONARY EMBOLISM
     Dates: start: 19970101
  6. WARFARIN [Concomitant]
     Indication: VENOUS INSUFFICIENCY
  7. PHENOBARBITAL [Concomitant]
     Indication: CONVULSION PROPHYLAXIS
     Dates: start: 19940101
  8. OMEPRAZOLE [Concomitant]
     Indication: DRUG USE FOR UNKNOWN INDICATION
  9. CALCIUM [Concomitant]
     Indication: OSTEOPOROSIS
     Dates: start: 19830101
  10. ALENDRONATE SODIUM [Concomitant]
     Indication: OSTEOPOROSIS
     Route: 048

REACTIONS (5)
  - CERVICAL CYST [None]
  - CYST [None]
  - INFLUENZA [None]
  - LOCALISED INFECTION [None]
  - PYREXIA [None]
